FAERS Safety Report 8405931-3 (Version None)
Quarter: 2012Q2

REPORT INFORMATION
  Report Type: 
  Country: None (occurrence: None)
  Receive Date: 20120529
  Receipt Date: 20011030
  Transmission Date: 20120825
  Serious: Yes (Death, Other)
  Sender: FDA-Public Use
  Company Number: 02100-JPN-01-0079

PATIENT
  Age: 73 Year
  Sex: Male
  Weight: 53 kg

DRUGS (10)
  1. PLETAL [Suspect]
     Dosage: 100 MG, BID, ORAL
     Route: 048
     Dates: start: 19980101, end: 20010807
  2. NORVASC (AMLODIPINE BESILATE) TABLET, 5 MG UNK TO 09/01/2001 [Concomitant]
  3. TAVEGYL (CLEMASTINE) UNK TO 09/01/2001 [Concomitant]
  4. LASIX [Suspect]
     Indication: RENAL FAILURE CHRONIC
     Dosage: , ORAL 0, IV PUSH
     Route: 048
     Dates: start: 19980101, end: 20010828
  5. LASIX [Suspect]
     Indication: RENAL FAILURE CHRONIC
     Dosage: , ORAL 0, IV PUSH
     Route: 048
     Dates: start: 20010829, end: 20010901
  6. FERROMIA (FERROUS CITRATE) TABLET, 50 MG UNK TO 08/07/2001 [Concomitant]
  7. PURSENNID (SENNA LEAF) TABLET, 12 MG UNK TO 09/01/2001 [Concomitant]
  8. CALTAN (PRECIPITATEDCALCIUM CARBONATE) TABLET, 500 MG UNK TO 08/07/200 [Concomitant]
  9. KREMEZIN (CHARCOAL, ACTIVATED) CAPSULE, 200 MG UNK TO 08/07/2001 [Concomitant]
  10. SODIUM BICARBONATE (SODIUM BICARBONATE) POWDER (EXCEPT [DPO]) 02/--/20 [Concomitant]

REACTIONS (7)
  - RENAL FAILURE CHRONIC [None]
  - PULMONARY HAEMORRHAGE [None]
  - APLASTIC ANAEMIA [None]
  - PULMONARY CONGESTION [None]
  - FUNGAL INFECTION [None]
  - CONDITION AGGRAVATED [None]
  - INTESTINAL ULCER [None]
